FAERS Safety Report 9567049 (Version 1)
Quarter: 2013Q3

REPORT INFORMATION
  Report Type: Spontaneous
  Country: US (occurrence: US)
  Receive Date: 20130930
  Receipt Date: 20130930
  Transmission Date: 20140515
  Serious: No
  Sender: FDA-Public Use
  Company Number: US-AMGEN-USASP2012061527

PATIENT
  Age: 44 Year
  Sex: Female

DRUGS (3)
  1. ENBREL [Suspect]
     Indication: PSORIATIC ARTHROPATHY
     Dosage: 50 MG, QWK
     Dates: start: 2007, end: 2008
  2. METHOTREXATE [Concomitant]
     Dosage: UNK
     Dates: start: 201208
  3. PREDNISONE [Concomitant]
     Dosage: UNK

REACTIONS (10)
  - Psoriatic arthropathy [Not Recovered/Not Resolved]
  - White blood cell count increased [Unknown]
  - Fatigue [Not Recovered/Not Resolved]
  - Decreased appetite [Not Recovered/Not Resolved]
  - Bone erosion [Not Recovered/Not Resolved]
  - Tendon sheath incision [Recovered/Resolved]
  - Tendon disorder [Not Recovered/Not Resolved]
  - Injection site pain [Recovered/Resolved]
  - Bronchitis [Not Recovered/Not Resolved]
  - Nasopharyngitis [Not Recovered/Not Resolved]
